FAERS Safety Report 10229735 (Version 2)
Quarter: 2014Q3

REPORT INFORMATION
  Report Type: Spontaneous
  Country: US (occurrence: None)
  Receive Date: 20140609
  Receipt Date: 20140728
  Transmission Date: 20150326
  Serious: Yes (Other)
  Sender: FDA-Public Use
  Company Number: 2373284

PATIENT
  Age: 38 Year
  Sex: Male
  Weight: 75 kg

DRUGS (2)
  1. MARCAINE [Suspect]
     Active Substance: BUPIVACAINE HYDROCHLORIDE
     Indication: LOCAL ANAESTHESIA
  2. METHYLPREDNISOLONE [Suspect]
     Active Substance: METHYLPREDNISOLONE
     Indication: ARTHRALGIA
     Dosage: 80 MG MILLIGRAM(S), UNKNOWN, UNKNOWN?
     Dates: start: 20131205

REACTIONS (5)
  - Pain [None]
  - Abscess [None]
  - Wound infection [None]
  - Injection site infection [None]
  - Product quality issue [None]

NARRATIVE: CASE EVENT DATE: 20131205
